FAERS Safety Report 4267187-5 (Version None)
Quarter: 2004Q1

REPORT INFORMATION
  Report Type: 
  Country: None (occurrence: None)
  Receive Date: 20040107
  Receipt Date: 20031225
  Transmission Date: 20041129
  Serious: Yes (Disabling)
  Sender: FDA-Public Use
  Company Number: F01200200326

PATIENT
  Age: 80 Year
  Sex: Male

DRUGS (2)
  1. CLOPIDOGREL BISULFATE [Suspect]
     Indication: CEREBRAL INFARCTION
     Dosage: 75 MG QD, ORAL
     Route: 048
     Dates: start: 20020213, end: 20020826
  2. NIZATIDINE [Concomitant]

REACTIONS (2)
  - EPILEPSY [None]
  - RETROGRADE AMNESIA [None]
